FAERS Safety Report 9742080 (Version 2)
Quarter: 2014Q1

REPORT INFORMATION
  Report Type: Spontaneous
  Country: IT (occurrence: IT)
  Receive Date: 20131210
  Receipt Date: 20140129
  Transmission Date: 20141002
  Serious: Yes (Other)
  Sender: FDA-Public Use
  Company Number: IT-BRISTOL-MYERS SQUIBB COMPANY-19864099

PATIENT
  Age: 76 Year
  Sex: Female

DRUGS (1)
  1. COUMADIN TABS 5 MG [Suspect]
     Indication: ATRIAL FIBRILLATION

REACTIONS (2)
  - Drug abuse [Unknown]
  - Gingival bleeding [Recovering/Resolving]
